FAERS Safety Report 16653311 (Version 2)
Quarter: 2019Q4

REPORT INFORMATION
  Report Type: Spontaneous
  Country: US (occurrence: US)
  Receive Date: 20190731
  Receipt Date: 20191022
  Transmission Date: 20200122
  Serious: Yes (Other)
  Sender: FDA-Public Use
  Company Number: US-COOPERSURGICAL, INC.-US-2019CPS002291

PATIENT
  Age: 25 Year
  Sex: Female
  Weight: 92.97 kg

DRUGS (1)
  1. PARAGARD T 380A [Suspect]
     Active Substance: COPPER
     Indication: CONTRACEPTION
     Dosage: UNK
     Route: 015
     Dates: start: 20170125, end: 20180615

REACTIONS (5)
  - Device breakage [Unknown]
  - Foreign body in reproductive tract [Unknown]
  - Pregnancy with contraceptive device [Recovered/Resolved]
  - Drug ineffective [Recovered/Resolved]
  - Complication of device removal [Unknown]

NARRATIVE: CASE EVENT DATE: 20180612
